FAERS Safety Report 15563198 (Version 1)
Quarter: 2018Q4

REPORT INFORMATION
  Report Type: Report from Study
  Country: JP (occurrence: JP)
  Receive Date: 20181029
  Receipt Date: 20181029
  Transmission Date: 20190205
  Serious: Yes (Hospitalization)
  Sender: FDA-Public Use
  Company Number: JP-ELI_LILLY_AND_COMPANY-JP201710005104

PATIENT
  Age: 75 Year
  Sex: Male

DRUGS (14)
  1. SODIUM RABEPRAZOLE [Concomitant]
     Active Substance: RABEPRAZOLE SODIUM
     Indication: PRODUCT USED FOR UNKNOWN INDICATION
     Dosage: 10 MG, DAILY
     Route: 065
  2. BAYASPIRIN [Concomitant]
     Active Substance: ASPIRIN
     Dosage: UNK UNK, UNKNOWN
     Route: 065
  3. ANCARON [Concomitant]
     Active Substance: AMIODARONE HYDROCHLORIDE
     Indication: PRODUCT USED FOR UNKNOWN INDICATION
     Dosage: UNK UNK, UNKNOWN
     Route: 042
     Dates: start: 20161109, end: 20161109
  4. PRASUGREL HYDROCHLORIDE [Suspect]
     Active Substance: PRASUGREL HYDROCHLORIDE
     Indication: MYOCARDIAL ISCHAEMIA
     Dosage: 3.75 MG, DAILY
     Route: 048
  5. HARTMANN                           /03352501/ [Concomitant]
     Dosage: UNK UNK, UNKNOWN
     Route: 042
     Dates: start: 20170503, end: 20170503
  6. CEFAZOLIN SODIUM. [Concomitant]
     Active Substance: CEFAZOLIN SODIUM
     Indication: PRODUCT USED FOR UNKNOWN INDICATION
     Dosage: UNK UNK, UNKNOWN
     Route: 042
     Dates: start: 20161109, end: 20161114
  7. ISOTONIC SODIUM CHLORIDE SOLUTION [Concomitant]
     Active Substance: SODIUM CHLORIDE
     Indication: THROMBOTIC CEREBRAL INFARCTION
     Dosage: UNK UNK, UNKNOWN
     Route: 042
     Dates: start: 20170425, end: 20170426
  8. BAYASPIRIN [Concomitant]
     Active Substance: ASPIRIN
     Indication: PRODUCT USED FOR UNKNOWN INDICATION
     Dosage: 100 MG, DAILY
     Route: 065
  9. HEPARIN [Concomitant]
     Active Substance: HEPARIN SODIUM
     Indication: PRODUCT USED FOR UNKNOWN INDICATION
     Dosage: 9000 IU, UNKNOWN
     Route: 065
  10. HARTMANN                           /03352501/ [Concomitant]
     Indication: THROMBOTIC CEREBRAL INFARCTION
     Dosage: UNK UNK, UNKNOWN
     Route: 042
     Dates: start: 20161109, end: 20161115
  11. HARTMANN                           /03352501/ [Concomitant]
     Dosage: UNK UNK, UNKNOWN
     Route: 042
     Dates: start: 20161231, end: 20161231
  12. HARTMANN                           /03352501/ [Concomitant]
     Dosage: UNK UNK, UNKNOWN
     Route: 042
     Dates: start: 20170418, end: 20170418
  13. CEFMETAZOLE SODIUM [Concomitant]
     Active Substance: CEFMETAZOLE SODIUM
     Indication: PRODUCT USED FOR UNKNOWN INDICATION
     Dosage: UNK UNK, UNKNOWN
     Route: 042
     Dates: start: 20161231, end: 20170101
  14. ZOLPIDEM                           /00914902/ [Concomitant]
     Active Substance: ZOLPIDEM\ZOLPIDEM TARTRATE
     Indication: PRODUCT USED FOR UNKNOWN INDICATION
     Dosage: UNK UNK, UNKNOWN
     Route: 048
     Dates: start: 20170504, end: 20170518

REACTIONS (7)
  - Atrioventricular block complete [Recovered/Resolved with Sequelae]
  - Nasopharyngitis [Recovered/Resolved]
  - Pancreatitis acute [Recovered/Resolved]
  - Pneumonia [Recovered/Resolved]
  - Thrombotic cerebral infarction [Recovering/Resolving]
  - Procedural haemorrhage [Recovered/Resolved with Sequelae]
  - Sleep apnoea syndrome [Recovering/Resolving]

NARRATIVE: CASE EVENT DATE: 20161109
